FAERS Safety Report 19514870 (Version 3)
Quarter: 2021Q3

REPORT INFORMATION
  Report Type: Spontaneous
  Country: US (occurrence: US)
  Receive Date: 20210710
  Receipt Date: 20210730
  Transmission Date: 20211014
  Serious: No
  Sender: FDA-Public Use
  Company Number: US-SA-2021SA222240

PATIENT
  Age: 64 Year
  Sex: Female

DRUGS (2)
  1. REFRESH [POLYVINYL ALCOHOL] [Concomitant]
     Dosage: UNK
  2. ALLEGRA ALLERGY [Suspect]
     Active Substance: FEXOFENADINE HYDROCHLORIDE
     Indication: HYPERSENSITIVITY
     Dosage: 1 DF, QD

REACTIONS (3)
  - Feeling cold [Unknown]
  - Peripheral coldness [Unknown]
  - Dry eye [Unknown]
